FAERS Safety Report 20870339 (Version 1)
Quarter: 2022Q2

REPORT INFORMATION
  Report Type: Spontaneous
  Country: GB (occurrence: GB)
  Receive Date: 20220525
  Receipt Date: 20220525
  Transmission Date: 20220721
  Serious: Yes (Hospitalization)
  Sender: FDA-Public Use
  Company Number: None

PATIENT

DRUGS (11)
  1. PREDNISOLONE [Suspect]
     Active Substance: PREDNISOLONE
     Dosage: STRENGTH: 5 MG, REDUCING REGIME-40MG EACH DAY FOR 13 DAYS THEN REDUCING BY 5MG EVERY 3 DAYS UNTIL ST
     Route: 065
  2. AMITRIPTYLINE [Concomitant]
     Active Substance: AMITRIPTYLINE
     Dosage: 30 MILLIGRAM DAILY; STRENGTH: 10 MG, UNIT DOSE: 30 MG, THREE TO BE TAKEN AT NIGHT
  3. CARVEDILOL [Concomitant]
     Active Substance: CARVEDILOL
     Dosage: 2 DOSAGE FORMS DAILY; STRENGTH: 3.125MG, UNIT DOSE: 1 DF, ONE TO BE TAKEN TWICE A DAY
  4. COTRIMOXAZOLE [Concomitant]
     Active Substance: SULFAMETHOXAZOLE\TRIMETHOPRIM
     Dosage: 1 DOSAGE FORMS DAILY; STRENGTH: 960 MG, UNIT DOSE: 1 DF, 1 IN THE MORNING
  5. FOLIC ACID [Concomitant]
     Active Substance: FOLIC ACID
     Dosage: 1 DOSAGE FORMS DAILY; STRENGTH: 5MG, UNIT DOSE: 1 DF, ONE TO BE TAKEN EACH DAY IN THE MORNING
  6. LACTULOSE [Concomitant]
     Active Substance: LACTULOSE
     Dosage: 3.1-3.7G/5ML ORAL SOLUTION - 20MLS TDS 2000 ML
     Route: 065
  7. OMEPRAZOLE [Concomitant]
     Active Substance: OMEPRAZOLE
     Dosage: 2 DOSAGE FORMS DAILY; STRENGTH: 20 MG, UNIT DOSE: 1DF, ONE TO BE TAKEN EACH DAY - TAKES 2 DAILY
  8. PREGABALIN [Concomitant]
     Active Substance: PREGABALIN
     Dosage: 1 DOSAGE FORMS DAILY; 25MG CAPSULES TWO TO BE TAKEN TWICE A DAY - TAKES ONE IN THE MORNING
     Route: 065
  9. SPIRONOLACTONE [Concomitant]
     Active Substance: SPIRONOLACTONE
     Dosage: 200 MILLIGRAM DAILY; STRENGTH: 100MG, UNIT DOSE: 200MG IN THE MORNING
     Route: 065
  10. SPIRONOLACTONE [Concomitant]
     Active Substance: SPIRONOLACTONE
     Route: 065
  11. THIAMINE [Concomitant]
     Active Substance: THIAMINE
     Dosage: 3 DOSAGE FORMS DAILY; STRENGTH: 100MG, UNIT DOSE:1DF, FREQUENCY: ONE TO BE TAKEN THREE TIMES A DAY
     Route: 065

REACTIONS (1)
  - Hyperglycaemia [Unknown]
